FAERS Safety Report 8080357-3 (Version None)
Quarter: 2012Q1

REPORT INFORMATION
  Report Type: 
  Country: None (occurrence: None)
  Receive Date: 20120130
  Receipt Date: 20120124
  Transmission Date: 20120608
  Serious: Yes (Other)
  Sender: FDA-Public Use
  Company Number: IT-PFIZER INC-2012020088

PATIENT
  Age: 73 Year
  Sex: Female

DRUGS (1)
  1. CARBOPLATIN [Suspect]
     Indication: OVARIAN CANCER
     Dosage: 437 MG, AS NEEDED
     Route: 042
     Dates: start: 20120118, end: 20120118

REACTIONS (4)
  - HOT FLUSH [None]
  - ERYTHEMA [None]
  - ABDOMINAL PAIN [None]
  - ASTHENIA [None]
